FAERS Safety Report 13332989 (Version 1)
Quarter: 2017Q1

REPORT INFORMATION
  Report Type: Spontaneous
  Country: ES (occurrence: ES)
  Receive Date: 20170313
  Receipt Date: 20170313
  Transmission Date: 20170428
  Serious: Yes (Other)
  Sender: FDA-Public Use
  Company Number: ES-TEVA-745785ISR

PATIENT
  Age: 54 Year
  Sex: Male

DRUGS (1)
  1. KENTERA [Suspect]
     Active Substance: OXYBUTYNIN
     Dosage: 3.9 MILLIGRAM DAILY;
     Route: 062
     Dates: start: 20170127, end: 20170215

REACTIONS (3)
  - Syncope [Recovering/Resolving]
  - Dry mouth [Unknown]
  - Asthenia [Unknown]

NARRATIVE: CASE EVENT DATE: 20170128
